FAERS Safety Report 5203364-4 (Version None)
Quarter: 2007Q1

REPORT INFORMATION
  Report Type: 
  Country: None (occurrence: None)
  Receive Date: 20070110
  Receipt Date: 20070102
  Transmission Date: 20070707
  Serious: Yes (Other)
  Sender: FDA-Public Use
  Company Number: US-JNJFOC-20060906800

PATIENT
  Sex: Female
  Weight: 90.04 kg

DRUGS (16)
  1. REMICADE [Suspect]
     Route: 042
  2. REMICADE [Suspect]
     Route: 042
  3. REMICADE [Suspect]
     Route: 042
  4. REMICADE [Suspect]
     Indication: RHEUMATOID ARTHRITIS
     Route: 042
  5. TOPROL-XL [Concomitant]
  6. TOPROL-XL [Concomitant]
  7. MOBIC [Concomitant]
  8. METHOTREXATE [Concomitant]
  9. ATACAND [Concomitant]
  10. COUMADIN [Concomitant]
     Indication: CEREBROVASCULAR ACCIDENT PROPHYLAXIS
  11. AVANDIA [Concomitant]
  12. ASPIRIN [Concomitant]
     Route: 048
  13. FUROSEMIDE [Concomitant]
  14. KLOR-CON [Concomitant]
  15. METFORMIN HCL [Concomitant]
  16. SIMVASTATIN [Concomitant]

REACTIONS (6)
  - ATRIAL FIBRILLATION [None]
  - CARDIAC DISORDER [None]
  - HEART RATE IRREGULAR [None]
  - HYPERTENSION [None]
  - RESPIRATORY DISORDER [None]
  - SICK SINUS SYNDROME [None]
